FAERS Safety Report 15703349 (Version 1)
Quarter: 2018Q4

REPORT INFORMATION
  Report Type: Report from Study
  Country: JP (occurrence: JP)
  Receive Date: 20181210
  Receipt Date: 20181210
  Transmission Date: 20190205
  Serious: No
  Sender: FDA-Public Use
  Company Number: JP-ACTELION-A-CH2018-182859

PATIENT
  Age: 43 Year
  Sex: Female

DRUGS (21)
  1. CYMBALTA [Concomitant]
     Active Substance: DULOXETINE HYDROCHLORIDE
  2. ETODOLAC. [Concomitant]
     Active Substance: ETODOLAC
  3. CARELOAD [Concomitant]
     Active Substance: BERAPROST SODIUM
  4. TAKECAB [Concomitant]
     Active Substance: VONOPRAZAN FUMURATE
  5. WARFARIN [Concomitant]
     Active Substance: WARFARIN
  6. AMLODIPINE [Concomitant]
     Active Substance: AMLODIPINE BESYLATE
  7. FLUITRAN [Concomitant]
     Active Substance: TRICHLORMETHIAZIDE
  8. GABAPEN [Concomitant]
     Active Substance: GABAPENTIN
  9. ALENDRONAT [Concomitant]
     Active Substance: ALENDRONATE SODIUM
  10. BAKTAR [Concomitant]
     Active Substance: SULFAMETHOXAZOLE\TRIMETHOPRIM
  11. FLUNITRAZEPAM [Concomitant]
     Active Substance: FLUNITRAZEPAM
  12. ISOSORBIDE. [Concomitant]
     Active Substance: ISOSORBIDE
  13. PREDONINE [Concomitant]
     Active Substance: PREDNISOLONE
  14. SARPOGRELATE HYDROCHLORIDE [Concomitant]
     Active Substance: SARPOGRELATE HYDROCHLORIDE
  15. TICLOPIDINE HYDROCHLORIDE. [Concomitant]
     Active Substance: TICLOPIDINE HYDROCHLORIDE
  16. DUROTEP [Concomitant]
     Active Substance: FENTANYL
  17. OPSUMIT [Suspect]
     Active Substance: MACITENTAN
     Indication: PULMONARY ARTERIAL HYPERTENSION
     Dosage: 10 MG, OD
     Route: 048
     Dates: start: 20180316, end: 20180420
  18. OLMESARTAN MEDOXOMIL. [Concomitant]
     Active Substance: OLMESARTAN MEDOXOMIL
  19. REBAMIPIDE [Concomitant]
     Active Substance: REBAMIPIDE
  20. CALONAL [Concomitant]
     Active Substance: ACETAMINOPHEN
  21. ENDOXAN [Concomitant]
     Active Substance: CYCLOPHOSPHAMIDE

REACTIONS (4)
  - Alanine aminotransferase increased [Recovered/Resolved]
  - Drug-induced liver injury [Recovered/Resolved]
  - Drug ineffective [Unknown]
  - Gamma-glutamyltransferase increased [Recovered/Resolved]

NARRATIVE: CASE EVENT DATE: 20180409
